FAERS Safety Report 7809123-8 (Version None)
Quarter: 2011Q4

REPORT INFORMATION
  Report Type: 
  Country: None (occurrence: None)
  Receive Date: 20111006
  Receipt Date: 20110926
  Transmission Date: 20120403
  Serious: Yes (Death, Other)
  Sender: FDA-Public Use
  Company Number: MPS1-1000574

PATIENT
  Age: 12 Year
  Sex: Female
  Weight: 25 kg

DRUGS (1)
  1. ALDURAZYME [Suspect]
     Indication: MUCOPOLYSACCHARIDOSIS I
     Dosage: 2500 IU, QW, INTRAVENOUS
     Route: 042
     Dates: start: 20040204, end: 20110220

REACTIONS (4)
  - DISEASE PROGRESSION [None]
  - SLEEP APNOEA SYNDROME [None]
  - MUCOPOLYSACCHARIDOSIS I [None]
  - CARDIAC DISORDER [None]
